FAERS Safety Report 13340891 (Version 1)
Quarter: 2017Q1

REPORT INFORMATION
  Report Type: Spontaneous
  Country: US (occurrence: US)
  Receive Date: 20170315
  Receipt Date: 20170315
  Transmission Date: 20170428
  Serious: Yes (Hospitalization)
  Sender: FDA-Public Use
  Company Number: None

PATIENT
  Sex: Female

DRUGS (1)
  1. SUTENT [Suspect]
     Active Substance: SUNITINIB MALATE
     Dosage: 50MG DAILY FOR 4 WEEKS THEN OFF FOR 2 WEEKS PO
     Route: 048
     Dates: start: 20170220, end: 20170313

REACTIONS (5)
  - Pyrexia [None]
  - Diarrhoea [None]
  - Dehydration [None]
  - Hypophagia [None]
  - Blood pressure increased [None]
